FAERS Safety Report 7524762-X (Version None)
Quarter: 2011Q2

REPORT INFORMATION
  Report Type: 
  Country: None (occurrence: None)
  Receive Date: 20110606
  Receipt Date: 20110601
  Transmission Date: 20111010
  Serious: Yes (Other)
  Sender: FDA-Public Use
  Company Number: US-BAYER-2011-048023

PATIENT
  Sex: Female

DRUGS (3)
  1. YASMIN [Suspect]
  2. DROSPIRENONE AND ETHINYL ESTRADIOL [Suspect]
  3. YAZ [Suspect]

REACTIONS (8)
  - ANXIETY [None]
  - FEAR [None]
  - CHOLELITHIASIS [None]
  - PAIN [None]
  - ANHEDONIA [None]
  - INJURY [None]
  - GALLBLADDER DISORDER [None]
  - EMOTIONAL DISTRESS [None]
